FAERS Safety Report 5232765-3 (Version None)
Quarter: 2007Q1

REPORT INFORMATION
  Report Type: 
  Country: None (occurrence: None)
  Receive Date: 20070206
  Receipt Date: 20070206
  Transmission Date: 20070707
  Serious: Yes (Death, Hospitalization)
  Sender: FDA-Public Use
  Company Number: None

PATIENT
  Sex: Male
  Weight: 88.4514 kg

DRUGS (6)
  1. DOXIL [Suspect]
     Indication: PROSTATE CANCER
     Dates: start: 20061227, end: 20061227
  2. TAXOTERE [Suspect]
     Indication: PROSTATE CANCER
     Dates: start: 20061227, end: 20070110
  3. KADIAN [Concomitant]
  4. LISINOPRIL [Concomitant]
  5. SIMVASTITIN [Concomitant]
  6. ASPIRIN [Concomitant]

REACTIONS (11)
  - ASTHENIA [None]
  - CONFUSIONAL STATE [None]
  - DEEP VEIN THROMBOSIS [None]
  - DISEASE PROGRESSION [None]
  - FATIGUE [None]
  - MENINGITIS [None]
  - MENTAL STATUS CHANGES [None]
  - METASTASES TO CENTRAL NERVOUS SYSTEM [None]
  - PROSTATE CANCER METASTATIC [None]
  - SEPSIS [None]
  - WHITE BLOOD CELL COUNT INCREASED [None]
